FAERS Safety Report 8167482 (Version 10)
Quarter: 2013Q1

REPORT INFORMATION
  Report Type: Report from Study
  Country: GB (occurrence: GB)
  Receive Date: 20111004
  Receipt Date: 20130314
  Transmission Date: 20140127
  Serious: Yes (Hospitalization)
  Sender: FDA-Public Use
  Company Number: GB-SHIRE-ALL1-2011-03681

PATIENT
  Age: 7 Year
  Sex: Male
  Weight: 19.8 kg

DRUGS (4)
  1. IDURSULFASE [Suspect]
     Indication: MUCOPOLYSACCHARIDOSIS II
     Dosage: 10.08 MG, 1X/WEEK(0.48MG/KG WEEKLY)
     Route: 041
     Dates: start: 20070405
  2. IDURSULFASE [Suspect]
     Dosage: 1.2 MG/KG, 1X/WEEK
     Route: 041
  3. PIRITON [Concomitant]
     Indication: PREMEDICATION
     Dosage: UNK, UNKNOWN
     Route: 048
     Dates: start: 20070524
  4. RISPERIDONE [Concomitant]
     Indication: ABNORMAL BEHAVIOUR
     Dosage: 0.5 MG, 2X/DAY:BID
     Route: 048
     Dates: start: 20110404

REACTIONS (2)
  - Device related infection [Recovered/Resolved]
  - Lower respiratory tract infection [Recovered/Resolved]
